FAERS Safety Report 9123393 (Version 1)
Quarter: 2013Q1

REPORT INFORMATION
  Report Type: Spontaneous
  Country: US (occurrence: US)
  Receive Date: 20130115
  Receipt Date: 20130115
  Transmission Date: 20140127
  Serious: No
  Sender: FDA-Public Use
  Company Number: US-BAYER-2013-002791

PATIENT
  Sex: Female

DRUGS (11)
  1. CIPRO [Suspect]
  2. GENOTROPIN [Concomitant]
     Dosage: 0.5 MG, UNK
     Route: 058
  3. PROTONIX [Concomitant]
  4. LEVOXYL [Concomitant]
  5. LEXAPRO [Concomitant]
  6. WELLBUTRIN [Concomitant]
  7. FLONASE [Concomitant]
  8. VITAMIN D [Concomitant]
  9. VENOFER [Concomitant]
  10. FISH OIL [Concomitant]
  11. RESTASIS [Concomitant]

REACTIONS (1)
  - Drug hypersensitivity [None]
